FAERS Safety Report 6635343-4 (Version None)
Quarter: 2010Q1

REPORT INFORMATION
  Report Type: 
  Country: None (occurrence: None)
  Receive Date: 20100315
  Receipt Date: 20100302
  Transmission Date: 20100710
  Serious: Yes (Other)
  Sender: FDA-Public Use
  Company Number: US-ELI_LILLY_AND_COMPANY-US201003000976

PATIENT
  Sex: Male

DRUGS (1)
  1. CYMBALTA [Suspect]
     Dosage: 60 MG, UNK
     Route: 048
     Dates: start: 20100101

REACTIONS (5)
  - AGGRESSION [None]
  - DYSPHAGIA [None]
  - GASTROINTESTINAL TUBE INSERTION [None]
  - GENERAL PHYSICAL HEALTH DETERIORATION [None]
  - MOTOR DYSFUNCTION [None]
